FAERS Safety Report 26154076 (Version 1)
Quarter: 2025Q4

REPORT INFORMATION
  Report Type: Spontaneous
  Country: US (occurrence: US)
  Receive Date: 20251215
  Receipt Date: 20251215
  Transmission Date: 20260118
  Serious: No
  Sender: SANOFI AVENTIS
  Company Number: US-SA-2025SA370191

PATIENT
  Age: 7 Year
  Sex: Female

DRUGS (1)
  1. DUPIXENT [Suspect]
     Active Substance: DUPILUMAB
     Indication: Eczema
     Dosage: 600 MG, 1X
     Route: 058
     Dates: start: 20251201, end: 20251201

REACTIONS (5)
  - Injection site pain [Unknown]
  - Affective disorder [Unknown]
  - Pruritus [Unknown]
  - Insomnia [Unknown]
  - Eczema [Unknown]

NARRATIVE: CASE EVENT DATE: 20251201
